FAERS Safety Report 26187498 (Version 1)
Quarter: 2025Q4

REPORT INFORMATION
  Report Type: Report from Study
  Country: US (occurrence: US)
  Receive Date: 20251222
  Receipt Date: 20251222
  Transmission Date: 20260117
  Serious: Yes (Other)
  Sender: ABBVIE
  Company Number: US-ABBVIE-6597751

PATIENT
  Age: 86 Year
  Sex: Female

DRUGS (1)
  1. QULIPTA [Suspect]
     Active Substance: ATOGEPANT
     Indication: Product used for unknown indication
     Route: 048
     Dates: start: 20250601

REACTIONS (4)
  - Deafness [Unknown]
  - Vertigo [Unknown]
  - Eye swelling [Unknown]
  - Migraine [Unknown]

NARRATIVE: CASE EVENT DATE: 20250101
